FAERS Safety Report 8838479 (Version 1)
Quarter: 2012Q4

REPORT INFORMATION
  Report Type: 
  Country: NL (occurrence: NL)
  Receive Date: 20121012
  Receipt Date: 20121012
  Transmission Date: 20130627
  Serious: Yes (Hospitalization)
  Sender: FDA-Public Use
  Company Number: NL-TEVA-362892ISR

PATIENT
  Sex: Male

DRUGS (6)
  1. METHOTREXATE [Suspect]
     Indication: MUSCULOSKELETAL PAIN
     Route: 048
     Dates: start: 2008, end: 20120920
  2. SULFASALAZINE TABLET 500MG [Suspect]
     Indication: MUSCULOSKELETAL PAIN
     Dosage: 3 keer per dag 1 stuk(s)
     Route: 048
     Dates: start: 2008, end: 20120921
  3. FRAGMIN  18000 INJVLST 25.000IE/ML WWSP 0,72ML [Concomitant]
     Dosage: 1 keer per dag 1 stuk(s)
     Route: 058
     Dates: start: 201207
  4. ABATACEPT INFUSIEPOEDER 250MG [Concomitant]
     Dosage: 1 keer per maand 3 stuk(s)
     Route: 042
     Dates: start: 2008, end: 20120801
  5. FOLIUMZUUR TABLET 5MG [Concomitant]
     Dosage: 1 keer per dag 1 stuk(s)
     Route: 048
     Dates: start: 2008, end: 20120920
  6. PANTOZOL [Concomitant]
     Dosage: 1 keer per dag 1 stuk(s)
     Route: 048
     Dates: start: 2008

REACTIONS (1)
  - Lung disorder [Unknown]
